FAERS Safety Report 9462117 (Version 4)
Quarter: 2014Q3

REPORT INFORMATION
  Report Type: Spontaneous
  Country: US (occurrence: None)
  Receive Date: 20130813
  Receipt Date: 20140924
  Transmission Date: 20150326
  Serious: Yes (Life-Threatening, Hospitalization)
  Sender: FDA-Public Use
  Company Number: 1713747-2013-99930

PATIENT
  Age: 42 Year
  Sex: Female
  Weight: 58.7 kg

DRUGS (18)
  1. ASPIRIN. [Concomitant]
     Active Substance: ASPIRIN
  2. NATURALYTE [Concomitant]
  3. LANTUS SOLOSTAR [Concomitant]
     Active Substance: INSULIN GLARGINE
  4. DILT-CD [Concomitant]
     Active Substance: DILTIAZEM HYDROCHLORIDE
  5. CULTURELLE [Concomitant]
     Active Substance: LACTOBACILLUS RHAMNOSUS
  6. FIORICET [Concomitant]
     Active Substance: ACETAMINOPHEN\BUTALBITAL\CAFFEINE
  7. 0.9% SODIUM CHLORIDE INJECTION [Suspect]
     Active Substance: SODIUM CHLORIDE
     Indication: RENAL FAILURE CHRONIC
  8. PRILOSEC [Concomitant]
     Active Substance: OMEPRAZOLE MAGNESIUM
  9. PROCRIT [Concomitant]
     Active Substance: ERYTHROPOIETIN
  10. ZEMPLAR [Concomitant]
     Active Substance: PARICALCITOL
  11. KEPPRA [Concomitant]
     Active Substance: LEVETIRACETAM
  12. NEPHROCAPS [Concomitant]
     Active Substance: ASCORBIC ACID\BIOTIN\CYANOCOBALAMIN\FOLIC ACID\NIACIN\PANTOTHENIC ACID\PYRIDOXINE\RIBOFLAVIN\THIAMINE
  13. LEVOTHROID [Concomitant]
     Active Substance: LEVOTHYROXINE SODIUM
  14. BLOODLINES [Concomitant]
  15. DIALYZER GRANUFLO [Concomitant]
  16. FRESENIUS 200BK HEMODIALYSIS MACHINE [Concomitant]
  17. PLAVIX [Concomitant]
     Active Substance: CLOPIDOGREL BISULFATE
  18. RENVELA [Concomitant]
     Active Substance: SEVELAMER CARBONATE

REACTIONS (10)
  - Generalised tonic-clonic seizure [None]
  - Pulse absent [None]
  - Injury [None]
  - Unresponsive to stimuli [None]
  - Haemodialysis [None]
  - Cyanosis [None]
  - Post procedural complication [None]
  - Product quality issue [None]
  - Blood pressure immeasurable [None]
  - Anticonvulsant drug level below therapeutic [None]

NARRATIVE: CASE EVENT DATE: 20130724
